FAERS Safety Report 12113407 (Version 1)
Quarter: 2016Q1

REPORT INFORMATION
  Report Type: Spontaneous
  Country: LT (occurrence: LT)
  Receive Date: 20160225
  Receipt Date: 20160225
  Transmission Date: 20160526
  Serious: Yes (Death)
  Sender: FDA-Public Use
  Company Number: LT-009507513-1403LTU003007

PATIENT
  Age: 83 Year
  Sex: Female

DRUGS (8)
  1. SINEMET [Suspect]
     Active Substance: CARBIDOPA\LEVODOPA
     Dosage: 7-8 TABLETS, FREQUENCY VARIES
     Route: 048
  2. NO-SPA [Concomitant]
     Active Substance: DROTAVERINE HYDROCHLORIDE
     Dosage: UNK
  3. MICARDIS [Concomitant]
     Active Substance: TELMISARTAN
     Dosage: UNK
  4. CARVEDILOL. [Concomitant]
     Active Substance: CARVEDILOL
     Dosage: UNK
  5. SINEMET [Suspect]
     Active Substance: CARBIDOPA\LEVODOPA
     Dosage: 7-8 TABLETS, FREQUENCY VARIES
     Route: 048
     Dates: start: 2006
  6. AMANTADINE HYDROCHLORIDE. [Concomitant]
     Active Substance: AMANTADINE HYDROCHLORIDE
     Dosage: UNK
  7. SINEMET [Suspect]
     Active Substance: CARBIDOPA\LEVODOPA
     Dosage: 7-8 TABLETS, FREQUENCY VARIES
     Route: 048
  8. SINEMET [Suspect]
     Active Substance: CARBIDOPA\LEVODOPA
     Indication: PARKINSON^S DISEASE
     Dosage: 7-8 TABLETS, FREQUENCY VARIES
     Route: 048

REACTIONS (9)
  - Speech disorder [Recovering/Resolving]
  - Disease progression [Unknown]
  - Somnolence [Recovering/Resolving]
  - Dysphagia [Recovering/Resolving]
  - Drug ineffective [Recovered/Resolved]
  - Overdose [Unknown]
  - Product quality issue [Unknown]
  - Disease complication [Fatal]
  - Asthenia [Recovering/Resolving]

NARRATIVE: CASE EVENT DATE: 2006
